FAERS Safety Report 12531067 (Version 1)
Quarter: 2016Q3

REPORT INFORMATION
  Report Type: Spontaneous
  Country: BG (occurrence: BG)
  Receive Date: 20160706
  Receipt Date: 20160706
  Transmission Date: 20161109
  Serious: Yes (Other)
  Sender: FDA-Public Use
  Company Number: PHHY2016BG090456

PATIENT
  Age: 14 Year
  Sex: Male

DRUGS (1)
  1. EXJADE [Suspect]
     Active Substance: DEFERASIROX
     Indication: THALASSAEMIA BETA
     Dosage: 30 MG/KG/DAY, UNK (STARTING DOSE)
     Route: 065
     Dates: start: 2008

REACTIONS (5)
  - Insulin-like growth factor decreased [Unknown]
  - Haemoglobin decreased [Unknown]
  - Blood testosterone decreased [Unknown]
  - Epiphyses delayed fusion [Unknown]
  - Delayed puberty [Unknown]
